FAERS Safety Report 6982755-5 (Version None)
Quarter: 2010Q3

REPORT INFORMATION
  Report Type: 
  Country: None (occurrence: None)
  Receive Date: 20100914
  Receipt Date: 20100326
  Transmission Date: 20110219
  Serious: Yes (Other)
  Sender: FDA-Public Use
  Company Number: US-PFIZER INC-2010040046

PATIENT
  Sex: Female
  Weight: 58.05 kg

DRUGS (4)
  1. LYRICA [Suspect]
     Indication: HERPES ZOSTER
     Dosage: 50 MG, 1X/DAY
     Route: 048
     Dates: start: 20100301
  2. NORVASC [Concomitant]
     Indication: HYPERTENSION
     Dosage: UNK
  3. PROTONIX [Concomitant]
     Dosage: UNK
  4. EXCEDRIN (MIGRAINE) [Concomitant]
     Dosage: UNK

REACTIONS (4)
  - CONFUSIONAL STATE [None]
  - DRUG EFFECT DECREASED [None]
  - DYSPNOEA [None]
  - SOMNOLENCE [None]
